FAERS Safety Report 7430972-2 (Version None)
Quarter: 2011Q2

REPORT INFORMATION
  Report Type: 
  Country: None (occurrence: None)
  Receive Date: 20110421
  Receipt Date: 20110413
  Transmission Date: 20111010
  Serious: Yes (Hospitalization)
  Sender: FDA-Public Use
  Company Number: FR-PFIZER INC-2011080908

PATIENT
  Age: 39 Year
  Sex: Female

DRUGS (2)
  1. SUBUTEX [Concomitant]
     Dosage: 6 MG, UNK
  2. XANAX [Suspect]
     Route: 048

REACTIONS (2)
  - SOMNOLENCE [None]
  - POISONING DELIBERATE [None]
